FAERS Safety Report 18118933 (Version 1)
Quarter: 2020Q3

REPORT INFORMATION
  Report Type: Spontaneous
  Country: US (occurrence: US)
  Receive Date: 20200806
  Receipt Date: 20200806
  Transmission Date: 20201103
  Serious: Yes (Life-Threatening, Hospitalization)
  Sender: FDA-Public Use
  Company Number: None

PATIENT
  Age: 73 Year
  Sex: Female
  Weight: 63.5 kg

DRUGS (9)
  1. ELIQUIS [Suspect]
     Active Substance: APIXABAN
     Indication: ATRIAL FIBRILLATION
     Dosage: ?          QUANTITY:1 DF DOSAGE FORM;?
     Route: 048
     Dates: start: 19970101, end: 20200328
  2. LEVOTHYROXINE. [Concomitant]
     Active Substance: LEVOTHYROXINE
  3. YOUNG LIVING PANAWAY TOPCIAL OIL [Concomitant]
  4. VITAMINS [Concomitant]
     Active Substance: VITAMINS
  5. YOUNG LIVING NINJA RED [Concomitant]
  6. DIGOXIN. [Concomitant]
     Active Substance: DIGOXIN
  7. CALCIUM WITH VIT D [Concomitant]
  8. PANTAPROZOLE [Concomitant]
     Active Substance: PANTOPRAZOLE SODIUM
  9. PROBIOTICS [Concomitant]
     Active Substance: PROBIOTICS NOS

REACTIONS (7)
  - Syncope [None]
  - Full blood count decreased [None]
  - Feeling hot [None]
  - Blood pressure decreased [None]
  - Internal haemorrhage [None]
  - Hyperhidrosis [None]
  - Nausea [None]

NARRATIVE: CASE EVENT DATE: 20200328
